FAERS Safety Report 6020714-X (Version None)
Quarter: 2008Q4

REPORT INFORMATION
  Report Type: 
  Country: None (occurrence: None)
  Receive Date: 20081222
  Receipt Date: 20081210
  Transmission Date: 20090506
  Serious: Yes (Other)
  Sender: FDA-Public Use
  Company Number: IPS_01392_2008

PATIENT
  Sex: Male

DRUGS (1)
  1. APO-GO (APO-GO - APOMORPHINE HYDROCHLORIDE) (NOT SPECIFIED) [Suspect]
     Indication: PARKINSON'S DISEASE
     Dosage: DF, SUBCUTANEOUS
     Route: 058

REACTIONS (3)
  - ACCIDENTAL NEEDLE STICK [None]
  - DEVICE BREAKAGE [None]
  - DYSKINESIA [None]
